FAERS Safety Report 16595829 (Version 1)
Quarter: 2019Q3

REPORT INFORMATION
  Report Type: Spontaneous
  Country: FR (occurrence: FR)
  Receive Date: 20190719
  Receipt Date: 20190719
  Transmission Date: 20191004
  Serious: Yes (Hospitalization)
  Sender: FDA-Public Use
  Company Number: FR-ROCHE-2358251

PATIENT
  Sex: Male
  Weight: 87 kg

DRUGS (4)
  1. AVASTIN [Suspect]
     Active Substance: BEVACIZUMAB
     Indication: ADENOCARCINOMA OF COLON
     Dosage: 11 CURES
     Route: 041
     Dates: start: 20190206, end: 20190703
  2. OXALIPLATIN ACCORD [Suspect]
     Active Substance: OXALIPLATIN
     Indication: ADENOCARCINOMA OF COLON
     Dosage: 7 CURES
     Route: 041
     Dates: start: 201805, end: 201810
  3. CAPECITABINE ACCORD [Suspect]
     Active Substance: CAPECITABINE
     Indication: ADENOCARCINOMA OF COLON
     Dosage: 7 CURES
     Route: 048
     Dates: start: 201805, end: 201810
  4. IRINOTECAN [Suspect]
     Active Substance: IRINOTECAN
     Indication: ADENOCARCINOMA OF COLON
     Dosage: 11 CURES
     Route: 041
     Dates: start: 20190206, end: 20190703

REACTIONS (2)
  - Cough [Not Recovered/Not Resolved]
  - Interstitial lung disease [Not Recovered/Not Resolved]

NARRATIVE: CASE EVENT DATE: 201805
